FAERS Safety Report 23193327 (Version 2)
Quarter: 2023Q4

REPORT INFORMATION
  Report Type: Spontaneous
  Country: FR (occurrence: FR)
  Receive Date: 20231116
  Receipt Date: 20231121
  Transmission Date: 20240109
  Serious: Yes (Other)
  Sender: FDA-Public Use
  Company Number: FR-ASPEN-GLO2023FR006978

PATIENT
  Age: 35 Year
  Sex: Male

DRUGS (5)
  1. ADALIMUMAB [Suspect]
     Active Substance: ADALIMUMAB\ISOPROPYL ALCOHOL
     Indication: Crohn^s disease
     Dosage: UNK (COMBINING ADALIMUMAB AND AZATHIOPRINE FOR 10 YEARS)
     Route: 065
  2. INFLIXIMAB [Suspect]
     Active Substance: INFLIXIMAB
     Indication: Crohn^s disease
     Dosage: UNK
     Route: 065
  3. METHOTREXATE SODIUM [Suspect]
     Active Substance: METHOTREXATE SODIUM
     Indication: Crohn^s disease
     Dosage: UNK (AZATHIOPRINE THEN METHOTREXATE FOR 6 YEARS)
     Route: 065
  4. AZATHIOPRINE [Suspect]
     Active Substance: AZATHIOPRINE
     Indication: Crohn^s disease
     Dosage: UNK (COMBINING ADALIMUMAB AND AZATHIOPRINE FOR 10 YEARS)
     Route: 065
  5. AZATHIOPRINE [Suspect]
     Active Substance: AZATHIOPRINE
     Dosage: UNK (AZATHIOPRINE THEN METHOTREXATE FOR 6 YEARS)
     Route: 065

REACTIONS (2)
  - Epstein-Barr virus associated lymphoma [Unknown]
  - B-cell lymphoma [Unknown]
